FAERS Safety Report 9355808 (Version 2)
Quarter: 2013Q3

REPORT INFORMATION
  Report Type: Spontaneous
  Country: US (occurrence: US)
  Receive Date: 20130619
  Receipt Date: 20130709
  Transmission Date: 20140515
  Serious: Yes (Death, Hospitalization, Other)
  Sender: FDA-Public Use
  Company Number: US-GILEAD-2013-0077304

PATIENT
  Age: 70 Year
  Sex: Male

DRUGS (13)
  1. LETAIRIS [Suspect]
     Indication: PULMONARY ARTERIAL HYPERTENSION
     Dosage: 5 MG, QD
     Route: 048
     Dates: start: 201304
  2. LETAIRIS [Suspect]
     Dosage: 10 MG, QD
     Route: 048
     Dates: start: 201305
  3. FLOLAN [Concomitant]
  4. FERROUS GLUCONATE [Concomitant]
  5. DOCUSATE SODIUM [Concomitant]
  6. SILDENAFIL [Concomitant]
  7. FUROSEMIDE [Concomitant]
  8. DIGOXIN [Concomitant]
  9. WARFARIN [Concomitant]
  10. SPIRONOLACTONE [Concomitant]
  11. PRAVASTATIN [Concomitant]
  12. TAMSULOSIN [Concomitant]
  13. IPRATROPIUM [Concomitant]

REACTIONS (7)
  - Cardiac arrest [Fatal]
  - Respiratory failure [Unknown]
  - Dyspnoea [Unknown]
  - Bradycardia [Unknown]
  - Hypotension [Unknown]
  - Respiratory acidosis [Unknown]
  - Renal impairment [Unknown]
